FAERS Safety Report 8033161-6 (Version None)
Quarter: 2012Q1

REPORT INFORMATION
  Report Type: 
  Country: None (occurrence: None)
  Receive Date: 20120110
  Receipt Date: 20120110
  Transmission Date: 20120608
  Serious: Yes (Other)
  Sender: FDA-Public Use
  Company Number: None

PATIENT
  Age: 28 Year
  Sex: Female
  Weight: 53.523 kg

DRUGS (2)
  1. ONDANSETRON [Suspect]
     Indication: NAUSEA
     Dosage: 4 MG
     Route: 048
     Dates: start: 20120107, end: 20120107
  2. ONDANSETRON [Suspect]
     Indication: VOMITING
     Dosage: 4 MG
     Route: 048
     Dates: start: 20120107, end: 20120107

REACTIONS (5)
  - PALPITATIONS [None]
  - SWOLLEN TONGUE [None]
  - BODY TEMPERATURE INCREASED [None]
  - DYSPHAGIA [None]
  - PHARYNGEAL OEDEMA [None]
